FAERS Safety Report 5397629-3 (Version None)
Quarter: 2007Q3

REPORT INFORMATION
  Report Type: 
  Country: None (occurrence: None)
  Receive Date: 20070726
  Receipt Date: 20070719
  Transmission Date: 20080115
  Serious: Yes (Hospitalization, Other)
  Sender: FDA-Public Use
  Company Number: FR-BAYER-200610801BFR

PATIENT
  Age: 69 Year
  Sex: Male
  Weight: 75 kg

DRUGS (25)
  1. SORAFENIB [Suspect]
     Indication: RENAL CELL CARCINOMA STAGE UNSPECIFIED
     Dosage: TOTAL DAILY DOSE: 800 MG  UNIT DOSE: 200 MG
     Route: 048
     Dates: start: 20060411, end: 20060509
  2. SORAFENIB [Suspect]
     Dosage: TOTAL DAILY DOSE: 800 MG  UNIT DOSE: 200 MG
     Route: 048
     Dates: start: 20060613, end: 20060717
  3. SORAFENIB [Suspect]
     Dosage: TOTAL DAILY DOSE: 400 MG  UNIT DOSE: 200 MG
     Route: 048
     Dates: start: 20060830
  4. SORAFENIB [Suspect]
     Dosage: TOTAL DAILY DOSE: 800 MG  UNIT DOSE: 200 MG
     Route: 048
     Dates: start: 20060509, end: 20060612
  5. SORAFENIB [Suspect]
     Dosage: TOTAL DAILY DOSE: 800 MG  UNIT DOSE: 200 MG
     Route: 048
     Dates: start: 20060320, end: 20060411
  6. SORAFENIB [Suspect]
     Dosage: TOTAL DAILY DOSE: 800 MG  UNIT DOSE: 200 MG
     Route: 048
     Dates: start: 20060717, end: 20060821
  7. KAYEXALATE [Concomitant]
     Indication: RENAL FAILURE
     Route: 065
     Dates: start: 20060101
  8. DIGOXIN [Concomitant]
     Indication: CARDIAC FAILURE
     Route: 065
     Dates: start: 19910101
  9. PRAVASTATIN [Concomitant]
     Indication: HYPERCHOLESTEROLAEMIA
     Route: 065
  10. PREVISCAN [Concomitant]
     Indication: POSTOPERATIVE CARE
     Route: 065
     Dates: start: 20040101, end: 20060601
  11. ALLOPURINOL [Concomitant]
     Indication: RENAL FAILURE
     Route: 065
     Dates: start: 20060101
  12. DOXAZOSIN MESYLATE [Concomitant]
     Indication: UNEVALUABLE EVENT
     Route: 065
  13. RABEPRAZOLE SODIUM [Concomitant]
     Indication: GASTRIC ULCER
     Route: 065
  14. LASIX [Concomitant]
     Indication: HYPERTENSION
     Route: 065
  15. AMARYL [Concomitant]
     Indication: DIABETES MELLITUS
     Route: 065
  16. FEROGRAD [Concomitant]
     Indication: ANAEMIA
     Route: 065
     Dates: start: 20060101
  17. IMOVANE [Concomitant]
     Indication: RENAL FAILURE
     Route: 065
     Dates: start: 20060601
  18. DAFALGAN [Concomitant]
     Indication: PAIN
     Route: 065
  19. KARDEGIC [Concomitant]
     Indication: POSTOPERATIVE CARE
     Route: 065
     Dates: start: 20060601
  20. IMODIUM [Concomitant]
     Indication: DIARRHOEA
     Route: 065
     Dates: start: 20060601, end: 20060801
  21. IMODIUM [Concomitant]
     Route: 065
     Dates: start: 20060801
  22. ALUMINUM HYDROXIDE AND MAGNESIUM TRISILICATE [Concomitant]
     Indication: DIARRHOEA
     Route: 065
     Dates: start: 20060601
  23. QUESTRAN [Concomitant]
     Indication: DIARRHOEA
     Route: 065
     Dates: start: 20060717, end: 20060701
  24. SODIUM BICARBONATE [Concomitant]
     Indication: STOMATITIS
     Route: 048
     Dates: start: 20060401, end: 20060801
  25. BETNEVAL [Concomitant]
     Indication: PALMAR-PLANTAR ERYTHRODYSAESTHESIA SYNDROME
     Route: 065
     Dates: start: 20060717

REACTIONS (4)
  - DEHYDRATION [None]
  - DIARRHOEA [None]
  - HEADACHE [None]
  - RENAL FAILURE [None]
